FAERS Safety Report 4394043-4 (Version None)
Quarter: 2004Q3

REPORT INFORMATION
  Report Type: 
  Country: None (occurrence: None)
  Receive Date: 20040708
  Receipt Date: 20040624
  Transmission Date: 20050211
  Serious: Yes (Other)
  Sender: FDA-Public Use
  Company Number: A-US2004-06686

PATIENT
  Age: 69 Year
  Sex: Female

DRUGS (7)
  1. TRACLEER [Suspect]
     Indication: PULMONARY HYPERTENSION
     Dosage: 125 MG, BID, ORAL
     Route: 048
     Dates: start: 20040101
  2. INSULIN [Concomitant]
  3. WATER PILLS [Concomitant]
  4. BEXTRA [Concomitant]
  5. ACIPHEX [Concomitant]
  6. SALAGEN [Concomitant]
  7. COUMADIN [Concomitant]

REACTIONS (6)
  - ANAEMIA [None]
  - FATIGUE [None]
  - HAEMANGIOMA OF LIVER [None]
  - METASTASES TO LIVER [None]
  - OEDEMA PERIPHERAL [None]
  - WEIGHT INCREASED [None]
